FAERS Safety Report 4864731-1 (Version None)
Quarter: 2005Q4

REPORT INFORMATION
  Report Type: 
  Country: None (occurrence: None)
  Receive Date: 20051222
  Receipt Date: 20051005
  Transmission Date: 20060501
  Serious: Yes (Hospitalization, Other)
  Sender: FDA-Public Use
  Company Number: US-MERCK-0510USA04167

PATIENT
  Age: 51 Year
  Sex: Female
  Weight: 68 kg

DRUGS (21)
  1. VIOXX [Suspect]
     Indication: INTERVERTEBRAL DISC PROTRUSION
     Route: 048
     Dates: start: 20000101, end: 20040901
  2. VIOXX [Suspect]
     Indication: POLYARTHRITIS
     Route: 048
     Dates: start: 20000101, end: 20040901
  3. NORVASC [Concomitant]
     Route: 065
  4. ATENOLOL [Concomitant]
     Route: 065
  5. LISINOPRIL [Concomitant]
     Route: 065
  6. PREMARIN [Concomitant]
     Route: 065
  7. ZOLOFT [Concomitant]
     Route: 065
  8. NEURONTIN [Concomitant]
     Route: 065
  9. SONATA [Concomitant]
     Route: 065
  10. SOMA [Concomitant]
     Route: 065
  11. WELLBUTRIN [Concomitant]
     Route: 065
  12. SEREVENT [Concomitant]
     Route: 065
  13. PULMICORT [Concomitant]
     Route: 065
  14. BENADRYL [Concomitant]
     Route: 065
  15. PREVACID [Concomitant]
     Route: 065
  16. PREDNISONE [Concomitant]
     Route: 065
  17. VITAMINS (UNSPECIFIED) [Concomitant]
     Route: 065
  18. ENDOCET [Concomitant]
     Route: 065
  19. [THERAPY UNSPECIFIED] [Concomitant]
     Route: 065
  20. FLAXSEED [Concomitant]
     Route: 065
  21. EVENING PRIMROSE OIL [Concomitant]
     Route: 065

REACTIONS (21)
  - AFFECT LABILITY [None]
  - ASTHMA [None]
  - BACK PAIN [None]
  - CARDIOVASCULAR DISORDER [None]
  - CEREBROVASCULAR ACCIDENT [None]
  - CHEST PAIN [None]
  - CONFUSIONAL STATE [None]
  - DEPRESSION [None]
  - DIZZINESS [None]
  - DYSPEPSIA [None]
  - ELECTROCARDIOGRAM ST-T CHANGE [None]
  - HEART RATE IRREGULAR [None]
  - HYPERTENSION [None]
  - LACUNAR INFARCTION [None]
  - NECK INJURY [None]
  - NECK PAIN [None]
  - PAIN IN JAW [None]
  - PANIC ATTACK [None]
  - PANIC DISORDER [None]
  - POST-TRAUMATIC STRESS DISORDER [None]
  - THROMBOSIS [None]
